FAERS Safety Report 5113779-0 (Version None)
Quarter: 2006Q3

REPORT INFORMATION
  Report Type: 
  Country: None (occurrence: None)
  Receive Date: 20060925
  Receipt Date: 20040428
  Transmission Date: 20061208
  Serious: Yes (Life-Threatening)
  Sender: FDA-Public Use
  Company Number: 200411727FR

PATIENT
  Age: 56 Year
  Sex: Male

DRUGS (7)
  1. LANTUS [Suspect]
     Indication: DIABETES MELLITUS NON-INSULIN-DEPENDENT
     Route: 058
     Dates: start: 20040407, end: 20040410
  2. GLIMEPIRIDE [Suspect]
     Indication: DIABETES MELLITUS NON-INSULIN-DEPENDENT
     Route: 048
     Dates: end: 20040412
  3. PYOSTACINE [Suspect]
     Route: 048
     Dates: start: 20040301, end: 20040406
  4. PYOSTACINE [Suspect]
     Route: 048
     Dates: start: 20040407, end: 20040409
  5. PYOSTACINE [Suspect]
     Route: 048
     Dates: start: 20040410, end: 20040412
  6. MOGADON [Suspect]
     Route: 048
     Dates: start: 20040405, end: 20040407
  7. BEFIZAL [Suspect]
     Route: 048
     Dates: end: 20040412

REACTIONS (22)
  - CARDIAC ARREST [None]
  - CHOLESTASIS [None]
  - CONJUNCTIVITIS [None]
  - CONJUNCTIVITIS INFECTIVE [None]
  - COUGH [None]
  - DRUG HYPERSENSITIVITY [None]
  - DYSPNOEA [None]
  - ECZEMA [None]
  - FISTULA [None]
  - HAEMOPHILUS INFECTION [None]
  - HEPATOCELLULAR DAMAGE [None]
  - LIVER DISORDER [None]
  - OSTEOLYSIS [None]
  - PERFORATED ULCER [None]
  - PNEUMOTHORAX [None]
  - PULMONARY FUNCTION TEST ABNORMAL [None]
  - RASH [None]
  - RENAL DISORDER [None]
  - STAPHYLOCOCCAL INFECTION [None]
  - STEVENS-JOHNSON SYNDROME [None]
  - SUBCUTANEOUS ABSCESS [None]
  - TOXIC SKIN ERUPTION [None]
